FAERS Safety Report 9876855 (Version 1)
Quarter: 2014Q1

REPORT INFORMATION
  Report Type: Report from Study
  Country: GB (occurrence: GB)
  Receive Date: 20140206
  Receipt Date: 20140206
  Transmission Date: 20141002
  Serious: Yes (Other)
  Sender: FDA-Public Use
  Company Number: GB-ROCHE-1341847

PATIENT
  Sex: 0

DRUGS (3)
  1. CAPECITABINE [Suspect]
     Indication: NEUROENDOCRINE TUMOUR
     Route: 065
  2. STREPTOZOCIN [Suspect]
     Indication: NEUROENDOCRINE TUMOUR
     Route: 065
  3. CISPLATIN [Suspect]
     Indication: NEUROENDOCRINE TUMOUR
     Route: 065

REACTIONS (14)
  - Diarrhoea [Unknown]
  - Nausea [Unknown]
  - Vomiting [Unknown]
  - Mucosal inflammation [Unknown]
  - Fatigue [Unknown]
  - Embolism [Unknown]
  - Nephropathy toxic [Unknown]
  - Hepatotoxicity [Unknown]
  - Anaemia [Unknown]
  - Neutropenia [Unknown]
  - Blood glucose abnormal [Unknown]
  - Embolism [Unknown]
  - Palmar-plantar erythrodysaesthesia syndrome [Unknown]
  - Neuropathy peripheral [Unknown]
